FAERS Safety Report 8565236-7 (Version None)
Quarter: 2012Q3

REPORT INFORMATION
  Report Type: 
  Country: None (occurrence: None)
  Receive Date: 20120724
  Receipt Date: 20120710
  Transmission Date: 20120928
  Serious: Yes (Death)
  Sender: FDA-Public Use
  Company Number: ENTC2012-0307

PATIENT
  Sex: Male

DRUGS (1)
  1. STALEVO 50 [Suspect]
     Dosage: ORAL
     Route: 048

REACTIONS (1)
  - DEATH [None]
